FAERS Safety Report 8291568-6 (Version None)
Quarter: 2012Q2

REPORT INFORMATION
  Report Type: 
  Country: None (occurrence: None)
  Receive Date: 20120417
  Receipt Date: 20120405
  Transmission Date: 20120825
  Serious: Yes (Hospitalization)
  Sender: FDA-Public Use
  Company Number: US-ELI_LILLY_AND_COMPANY-US201003006957

PATIENT
  Sex: Female

DRUGS (6)
  1. METFORMIN HCL [Concomitant]
     Dosage: 1000 MG, 2/D
  2. HUMALOG [Suspect]
     Dosage: 15 U, UNK
  3. LANTUS [Concomitant]
  4. HUMALOG [Suspect]
     Indication: DIABETES MELLITUS
     Dosage: 15 U, UNK
  5. HUMALOG [Suspect]
     Dosage: 80 U, UNK
     Dates: start: 20100201, end: 20100201
  6. HUMALOG [Suspect]
     Dosage: 80 U, UNK
     Dates: start: 20100201, end: 20100201

REACTIONS (3)
  - BLOOD GLUCOSE INCREASED [None]
  - HOSPITALISATION [None]
  - DRUG INEFFECTIVE [None]
